FAERS Safety Report 7485886-9 (Version None)
Quarter: 2011Q2

REPORT INFORMATION
  Report Type: 
  Country: None (occurrence: None)
  Receive Date: 20110517
  Receipt Date: 20110509
  Transmission Date: 20111010
  Serious: Yes (Death, Hospitalization)
  Sender: FDA-Public Use
  Company Number: 2008BI013280

PATIENT
  Age: 65 Year
  Sex: Female

DRUGS (2)
  1. TYSABRI [Suspect]
     Indication: MULTIPLE SCLEROSIS
     Route: 042
     Dates: start: 20070830, end: 20080213
  2. AZATHIOPRINE [Concomitant]

REACTIONS (6)
  - MYELITIS TRANSVERSE [None]
  - HEMIPARESIS [None]
  - DRUG INEFFECTIVE [None]
  - NEUROMYELITIS OPTICA [None]
  - COMA [None]
  - APHASIA [None]
